FAERS Safety Report 20308530 (Version 6)
Quarter: 2022Q1

REPORT INFORMATION
  Report Type: Report from Study
  Country: CN (occurrence: None)
  Receive Date: 20220107
  Receipt Date: 20220303
  Transmission Date: 20220424
  Serious: Yes (Hospitalization)
  Sender: FDA-Public Use
  Company Number: CN-ROCHE-2994585

PATIENT
  Age: 48 Year
  Sex: Male
  Weight: 77 kg

DRUGS (36)
  1. ATEZOLIZUMAB [Suspect]
     Active Substance: ATEZOLIZUMAB
     Indication: Bile duct cancer
     Dosage: DATE OF MOST RECENT DOSE (1200 MG) OF STUDY DRUG PRIOR TO AE + SAE: 17/NOV/2021
     Route: 041
     Dates: start: 20210812
  2. CISPLATIN [Suspect]
     Active Substance: CISPLATIN
     Indication: Bile duct cancer
     Dosage: DATE OF MOST RECENT DOSE OF STUDY DRUG PRIOR TO AE + SAE: 23/NOV/2021 (38 MG), 29/NOV/2021 (43 MG)?O
     Route: 042
     Dates: start: 20210812
  3. GEMCITABINE [Suspect]
     Active Substance: GEMCITABINE
     Indication: Bile duct cancer
     Dosage: DATE OF MOST RECENT DOSE OF STUDY DRUG PRIOR TO AE + SAE: 23/NOV/2021 (1520), 29/NOV/2021 (1716 MG)
     Route: 042
     Dates: start: 20210812
  4. BEVACIZUMAB [Suspect]
     Active Substance: BEVACIZUMAB
     Indication: Bile duct cancer
     Dosage: DATE OF MOST RECENT DOSE OF STUDY DRUG PRIOR TO AE + SAE: 17/NOV/2021
     Route: 042
     Dates: start: 20210812
  5. BEVACIZUMAB [Suspect]
     Active Substance: BEVACIZUMAB
     Route: 042
     Dates: start: 20210812
  6. BEVACIZUMAB [Suspect]
     Active Substance: BEVACIZUMAB
     Route: 042
     Dates: start: 20210812
  7. COMPOUND GLYCYRRHIZIN (UNK INGREDIENTS) [Concomitant]
     Dates: start: 20210820
  8. PALONOSETRON HYDROCHLORIDE [Concomitant]
     Active Substance: PALONOSETRON HYDROCHLORIDE
     Dates: start: 20211217, end: 20211217
  9. PALONOSETRON HYDROCHLORIDE [Concomitant]
     Active Substance: PALONOSETRON HYDROCHLORIDE
     Dates: start: 20211201, end: 20211201
  10. PALONOSETRON HYDROCHLORIDE [Concomitant]
     Active Substance: PALONOSETRON HYDROCHLORIDE
     Dates: start: 20211223, end: 20211223
  11. PROMETHAZINE HYDROCHLORIDE [Concomitant]
     Active Substance: PROMETHAZINE HYDROCHLORIDE
     Dates: start: 20211217, end: 20211217
  12. PROMETHAZINE HYDROCHLORIDE [Concomitant]
     Active Substance: PROMETHAZINE HYDROCHLORIDE
     Dates: start: 20211201, end: 20211201
  13. PROMETHAZINE HYDROCHLORIDE [Concomitant]
     Active Substance: PROMETHAZINE HYDROCHLORIDE
     Dates: start: 20211223, end: 20211223
  14. GLUTATHIONE [Concomitant]
     Active Substance: GLUTATHIONE
     Dates: start: 20211217, end: 20211217
  15. GLUTATHIONE [Concomitant]
     Active Substance: GLUTATHIONE
     Dates: start: 20211201, end: 20211201
  16. GLUTATHIONE [Concomitant]
     Active Substance: GLUTATHIONE
     Dates: start: 20211223, end: 20211223
  17. METOCLOPRAMIDE DIHYDROCHLORIDE [Concomitant]
     Dates: start: 20211217, end: 20211217
  18. METOCLOPRAMIDE DIHYDROCHLORIDE [Concomitant]
     Dates: start: 20211223, end: 20211223
  19. METOCLOPRAMIDE DIHYDROCHLORIDE [Concomitant]
     Dates: start: 20211201, end: 20211201
  20. CETIRIZINE HYDROCHLORIDE [Concomitant]
     Active Substance: CETIRIZINE HYDROCHLORIDE
     Dates: start: 20211113
  21. PREDNISONE ACETATE [Concomitant]
     Active Substance: PREDNISONE ACETATE
     Dates: start: 20211203, end: 20211205
  22. CEFIXIME [Concomitant]
     Active Substance: CEFIXIME
     Dates: start: 20211226, end: 20211230
  23. METHYLPREDNISOLONE [Concomitant]
     Active Substance: METHYLPREDNISOLONE
     Route: 042
     Dates: start: 20211230, end: 20220104
  24. METHYLPREDNISOLONE [Concomitant]
     Active Substance: METHYLPREDNISOLONE
     Route: 042
     Dates: start: 20220105, end: 20220107
  25. METHYLPREDNISOLONE [Concomitant]
     Active Substance: METHYLPREDNISOLONE
     Route: 042
     Dates: start: 20220108, end: 20220110
  26. SPIRONOLACTONE [Concomitant]
     Active Substance: SPIRONOLACTONE
     Dates: start: 20220106
  27. FUROSEMIDE [Concomitant]
     Active Substance: FUROSEMIDE
     Dates: start: 20220106
  28. ALBUMIN HUMAN [Concomitant]
     Active Substance: ALBUMIN HUMAN
     Dates: start: 20220107, end: 20220110
  29. DESONIDE [Concomitant]
     Active Substance: DESONIDE
     Route: 061
     Dates: start: 20211113
  30. LEUCOGEN [Concomitant]
     Active Substance: LEUCOGEN
     Dates: start: 20211201, end: 20211215
  31. LEUCOGEN [Concomitant]
     Active Substance: LEUCOGEN
     Dates: start: 20211216, end: 20211221
  32. LEUCOGEN [Concomitant]
     Active Substance: LEUCOGEN
     Dates: start: 20211222
  33. LEUCOGEN [Concomitant]
     Active Substance: LEUCOGEN
     Dates: start: 20211124, end: 20211130
  34. VITAMIN B6 [Concomitant]
     Active Substance: PYRIDOXINE HYDROCHLORIDE
     Dates: start: 20211201, end: 20211201
  35. VITAMIN B6 [Concomitant]
     Active Substance: PYRIDOXINE HYDROCHLORIDE
     Dates: start: 20211223, end: 20211223
  36. APATINIB [Concomitant]
     Active Substance: APATINIB
     Dates: start: 20210812, end: 20211223

REACTIONS (2)
  - Platelet count decreased [Recovered/Resolved]
  - Febrile neutropenia [Recovered/Resolved]

NARRATIVE: CASE EVENT DATE: 20211230
